FAERS Safety Report 11558819 (Version 2)
Quarter: 2015Q4

REPORT INFORMATION
  Report Type: Spontaneous
  Country: US (occurrence: US)
  Receive Date: 20150928
  Receipt Date: 20151119
  Transmission Date: 20160304
  Serious: Yes (Other)
  Sender: FDA-Public Use
  Company Number: US-AMGEN-USASP2015099033

PATIENT
  Age: 51 Year
  Sex: Male
  Weight: 99.96 kg

DRUGS (22)
  1. AMLODIPINE [Concomitant]
     Active Substance: AMLODIPINE BESYLATE
     Dosage: 5 MG, QD
     Route: 048
  2. RESTASIS [Concomitant]
     Active Substance: CYCLOSPORINE
     Dosage: 0.05 %, QD
  3. FLUTICASONE [Concomitant]
     Active Substance: FLUTICASONE\FLUTICASONE PROPIONATE
     Dosage: UNK UNK, QD SPRAY 1 SPRAY EVERY DAY BY NASAL ROUTE AS NEEDED FOR 30 DAYS
  4. FUROSEMIDE. [Concomitant]
     Active Substance: FUROSEMIDE
     Dosage: 40 MG, AS NECESSARY TAKE1 TABLET EVERY DAY BY ORAL ROUTE AS NEEDED FOR 30 DAYS
     Route: 048
  5. OXYCODONE [Concomitant]
     Active Substance: OXYCODONE
     Dosage: 15 MG, TAKE 1/2 TABLET BY MOUTH FOUR TIMES A DAY AND TAKE 1 TABLET AT BEDTIME IF NEEDED
     Route: 048
  6. TOPIRAMATE. [Concomitant]
     Active Substance: TOPIRAMATE
     Dosage: 50 MG, AS NECESSARY
  7. CHOLESTYRAMINE. [Concomitant]
     Active Substance: CHOLESTYRAMINE
     Dosage: 4 G, BID
     Route: 048
  8. DICLOFENAC SODIUM. [Concomitant]
     Active Substance: DICLOFENAC SODIUM
     Dosage: 3 %, AS NECESSARY APPLY 5-7 FTU TO THE AFFECTED AREA 3 TIMES DAILY AS NEEDED
  9. METHOTREXATE SODIUM. [Concomitant]
     Active Substance: METHOTREXATE SODIUM
     Dosage: 2.5 MG, TAKE 8 TABLETS EVERY WEEK BY FOR 91 DAYS.
     Route: 048
  10. TRAZODONE [Concomitant]
     Active Substance: TRAZODONE HYDROCHLORIDE
     Dosage: 150 MG, QD AS NECESSARY
     Route: 048
  11. LORAZEPAM. [Concomitant]
     Active Substance: LORAZEPAM
     Dosage: 1 MG, AS NECESSARY 1 TABLET AT BEDTIME IF NEEDED
     Route: 048
  12. SIMVASTATIN. [Concomitant]
     Active Substance: SIMVASTATIN
     Dosage: 40 MG, QD TAKE 1 TABLET EVERY DAY FOR 90 DAYS,
     Route: 048
  13. ENBREL [Suspect]
     Active Substance: ETANERCEPT
     Indication: RHEUMATOID ARTHRITIS
     Dosage: 50 MG, QWK
     Route: 058
     Dates: start: 201504, end: 201504
  14. GABAPENTIN. [Concomitant]
     Active Substance: GABAPENTIN
     Dosage: 600 MG, UNK TAKE 2 TABLET TWICE A DAY FOR 90 DAYS.
     Route: 048
  15. HYDROXYCHLOROQUINE [Concomitant]
     Active Substance: HYDROXYCHLOROQUINE
     Dosage: 200 MG, UNK TAKE 2 TABLETEVERY DAY FOR 90 DAYS
     Route: 048
  16. HYDROXYZINE HCL [Concomitant]
     Active Substance: HYDROXYZINE HYDROCHLORIDE
     Dosage: 50 MG, UNK 2 Q HS
     Route: 048
  17. METOPROLOL SUCCINATE. [Concomitant]
     Active Substance: METOPROLOL SUCCINATE
     Dosage: 100 MG, EVERY DAY  FOR 30 DAYS,
     Route: 048
  18. AMOXICILLIN. [Concomitant]
     Active Substance: AMOXICILLIN
     Indication: NASOPHARYNGITIS
     Dosage: 500 MG, UNK
  19. VENTOLIN HFA [Concomitant]
     Active Substance: ALBUTEROL SULFATE
     Dosage: 90 MUG, AS NECESSARY
  20. ESCITALOPRAM [Concomitant]
     Active Substance: ESCITALOPRAM OXALATE
     Dosage: 20 MG, QD
     Route: 048
  21. FOLIC ACID. [Concomitant]
     Active Substance: FOLIC ACID
     Dosage: 1 MG, UNK, TAKE 2 TABLET EVERY DAY FOR 90 DAYS.
     Route: 048
  22. IBUPROFEN. [Concomitant]
     Active Substance: IBUPROFEN
     Dosage: 800 MG, AS NECESSARY

REACTIONS (33)
  - Foot deformity [Unknown]
  - Dyspnoea [Unknown]
  - Musculoskeletal stiffness [Unknown]
  - Feeling abnormal [Unknown]
  - Osteoarthritis [Unknown]
  - Limb operation [Unknown]
  - Joint arthroplasty [Not Recovered/Not Resolved]
  - Sjogren^s syndrome [Unknown]
  - Pain [Unknown]
  - Dry eye [Unknown]
  - Anxiety [Unknown]
  - Musculoskeletal pain [Unknown]
  - Fatigue [Unknown]
  - Infection [Not Recovered/Not Resolved]
  - Pain in extremity [Unknown]
  - Carpal tunnel syndrome [Unknown]
  - Monarthritis [Unknown]
  - Dry mouth [Unknown]
  - Depression [Unknown]
  - Arthralgia [Unknown]
  - Joint stiffness [Unknown]
  - Oesophagitis [Unknown]
  - Spinal osteoarthritis [Unknown]
  - Stress [Unknown]
  - Myalgia [Unknown]
  - Joint injury [Unknown]
  - Respiratory disorder [Unknown]
  - Gastrooesophageal reflux disease [Unknown]
  - Arthritis infective [Unknown]
  - Bronchitis chronic [Unknown]
  - Arthropathy [Unknown]
  - Cough [Unknown]
  - Tenderness [Unknown]

NARRATIVE: CASE EVENT DATE: 2015
